FAERS Safety Report 23401464 (Version 1)
Quarter: 2024Q1

REPORT INFORMATION
  Report Type: Spontaneous
  Country: AU (occurrence: AU)
  Receive Date: 20240115
  Receipt Date: 20240115
  Transmission Date: 20240410
  Serious: Yes (Other)
  Sender: FDA-Public Use
  Company Number: AU-GLAXOSMITHKLINE-AU2024GSK005657

PATIENT

DRUGS (9)
  1. VALACYCLOVIR [Suspect]
     Active Substance: VALACYCLOVIR HYDROCHLORIDE
     Indication: Rash vesicular
     Dosage: 1 G, TID
  2. VALACYCLOVIR [Suspect]
     Active Substance: VALACYCLOVIR HYDROCHLORIDE
     Indication: Varicella zoster virus infection
     Dosage: 500 MG
  3. ACYCLOVIR [Concomitant]
     Active Substance: ACYCLOVIR
     Indication: Varicella zoster virus infection
     Dosage: 285 MG, SINGLE RENALLY ADJUSTED DOSE
     Route: 042
  4. ACYCLOVIR [Concomitant]
     Active Substance: ACYCLOVIR
     Indication: Rash vesicular
  5. FLUCLOXACILLIN [Concomitant]
     Active Substance: FLUCLOXACILLIN
     Indication: Varicella zoster virus infection
     Dosage: UNK
  6. FLUCLOXACILLIN [Concomitant]
     Active Substance: FLUCLOXACILLIN
     Indication: Rash vesicular
  7. GENTAMICIN [Concomitant]
     Active Substance: GENTAMICIN
     Indication: Varicella zoster virus infection
     Dosage: UNK
  8. GENTAMICIN [Concomitant]
     Active Substance: GENTAMICIN
     Indication: Rash vesicular
  9. GANCICLOVIR [Concomitant]
     Active Substance: GANCICLOVIR
     Indication: Varicella zoster virus infection
     Dosage: 0.625 MG/KG
     Route: 042

REACTIONS (9)
  - Neurotoxicity [Recovering/Resolving]
  - Confusional state [Recovering/Resolving]
  - Disorientation [Recovering/Resolving]
  - Aphasia [Recovering/Resolving]
  - Asterixis [Recovering/Resolving]
  - Cognitive disorder [Recovering/Resolving]
  - Myoclonus [Recovering/Resolving]
  - Language disorder [Recovering/Resolving]
  - Encephalopathy [Recovering/Resolving]
